FAERS Safety Report 9688669 (Version 1)
Quarter: 2013Q4

REPORT INFORMATION
  Report Type: Spontaneous
  Country: PT (occurrence: PT)
  Receive Date: 20131114
  Receipt Date: 20131114
  Transmission Date: 20140711
  Serious: Yes (Hospitalization)
  Sender: FDA-Public Use
  Company Number: PHHY2013PT127312

PATIENT
  Age: 30 Year
  Sex: Male

DRUGS (11)
  1. VALPROIC ACID [Suspect]
     Indication: TREMOR
  2. OLANZAPINE [Suspect]
  3. DIAZEPAM [Suspect]
  4. HALOPERIDOL [Suspect]
  5. ALPRAZOLAM [Suspect]
     Indication: ANXIETY DISORDER
  6. ACICLOVIR [Suspect]
  7. CEFTRIAXONE [Suspect]
  8. DANTROLENE [Suspect]
  9. BROMOCRIPTINE [Suspect]
  10. PROPOFOL [Suspect]
     Indication: GRAND MAL CONVULSION
  11. MIDAZOLAM [Suspect]
     Indication: GRAND MAL CONVULSION

REACTIONS (34)
  - Encephalitis autoimmune [Not Recovered/Not Resolved]
  - Autonomic nervous system imbalance [Recovering/Resolving]
  - Tachycardia [Recovering/Resolving]
  - Hyperthermia [Recovering/Resolving]
  - Hypertension [Recovering/Resolving]
  - Hyperhidrosis [Recovering/Resolving]
  - Dyskinesia [Recovering/Resolving]
  - Partial seizures [Recovering/Resolving]
  - Dystonia [Recovering/Resolving]
  - Tremor [Recovering/Resolving]
  - Posture abnormal [Recovering/Resolving]
  - Choreoathetosis [Recovering/Resolving]
  - Electroencephalogram abnormal [Unknown]
  - Status epilepticus [Recovering/Resolving]
  - Hypertonia [Recovering/Resolving]
  - Agitation [Recovering/Resolving]
  - Hypoventilation [Recovered/Resolved]
  - Depressed level of consciousness [Recovering/Resolving]
  - Unresponsive to stimuli [Recovering/Resolving]
  - Insomnia [Recovering/Resolving]
  - Restlessness [Recovered/Resolved]
  - Irritability [Recovering/Resolving]
  - Aggression [Recovered/Resolved]
  - Grand mal convulsion [Recovering/Resolving]
  - Nervous system disorder [Unknown]
  - Impulsive behaviour [Unknown]
  - Apathy [Recovering/Resolving]
  - Hypometabolism [Recovering/Resolving]
  - Hypermetabolism [Recovering/Resolving]
  - Hypotension [Recovering/Resolving]
  - Anaemia [Recovering/Resolving]
  - Hypofibrinogenaemia [Recovering/Resolving]
  - Haemoptysis [Recovering/Resolving]
  - Drug ineffective [Unknown]
